FAERS Safety Report 14148984 (Version 1)
Quarter: 2017Q4

REPORT INFORMATION
  Report Type: Report from Study
  Country: PK (occurrence: PK)
  Receive Date: 20171101
  Receipt Date: 20171101
  Transmission Date: 20180321
  Serious: Yes (Death, Hospitalization)
  Sender: FDA-Public Use
  Company Number: PK-INCYTE CORPORATION-2017IN009084

PATIENT

DRUGS (1)
  1. JAKAVI [Suspect]
     Active Substance: RUXOLITINIB
     Indication: PRIMARY MYELOFIBROSIS
     Dosage: 15 MG, BID
     Route: 048
     Dates: start: 20170419, end: 20170503

REACTIONS (3)
  - Blood creatinine increased [Fatal]
  - Pyrexia [Fatal]
  - Blood urea increased [Fatal]
